FAERS Safety Report 5680059-4 (Version None)
Quarter: 2008Q1

REPORT INFORMATION
  Report Type: 
  Country: None (occurrence: None)
  Receive Date: 20080326
  Receipt Date: 20080314
  Transmission Date: 20080703
  Serious: Yes (Hospitalization)
  Sender: FDA-Public Use
  Company Number: DE-BAYER-200814130GPV

PATIENT
  Sex: Male

DRUGS (3)
  1. BETAFERON [Suspect]
     Indication: MULTIPLE SCLEROSIS
     Dosage: UNIT DOSE: 4 MIU
     Route: 058
  2. CORTISONE [Concomitant]
     Indication: MULTIPLE SCLEROSIS
  3. CORTISONE [Concomitant]

REACTIONS (3)
  - LOSS OF CONSCIOUSNESS [None]
  - PYREXIA [None]
  - URINARY TRACT INFECTION [None]
